FAERS Safety Report 24338109 (Version 2)
Quarter: 2024Q4

REPORT INFORMATION
  Report Type: Spontaneous
  Country: TN (occurrence: TN)
  Receive Date: 20240919
  Receipt Date: 20241001
  Transmission Date: 20250115
  Serious: Yes (Other)
  Sender: RANBAXY
  Company Number: TN-SUN PHARMACEUTICAL INDUSTRIES LTD-2024R1-468739

PATIENT
  Age: 71 Year
  Sex: Female

DRUGS (1)
  1. METHOTREXATE [Suspect]
     Active Substance: METHOTREXATE
     Indication: Eosinophilic fasciitis
     Dosage: 15 MILLIGRAM, WEEKLY
     Route: 065

REACTIONS (1)
  - Therapy partial responder [Unknown]
